FAERS Safety Report 7525873-5 (Version None)
Quarter: 2011Q2

REPORT INFORMATION
  Report Type: 
  Country: None (occurrence: None)
  Receive Date: 20110606
  Receipt Date: 20110601
  Transmission Date: 20111010
  Serious: Yes (Other)
  Sender: FDA-Public Use
  Company Number: A0929886A

PATIENT
  Age: 67 Year
  Sex: Male

DRUGS (7)
  1. MULTI-VITAMIN [Concomitant]
  2. VITAMIN B [Concomitant]
  3. LISINOPRIL [Concomitant]
  4. KELP [Concomitant]
  5. ALBUTEROL SULFATE AUTOHALER [Concomitant]
  6. RYTHMOL SR [Suspect]
     Indication: ATRIAL FIBRILLATION
     Dosage: 225MG TWICE PER DAY
     Route: 048
     Dates: start: 20080101
  7. FLOVENT [Concomitant]

REACTIONS (7)
  - DIZZINESS [None]
  - FATIGUE [None]
  - AGEUSIA [None]
  - CONSTIPATION [None]
  - ASTHENIA [None]
  - ANOSMIA [None]
  - HEADACHE [None]
